FAERS Safety Report 14891980 (Version 2)
Quarter: 2018Q2

REPORT INFORMATION
  Report Type: Spontaneous
  Country: AU (occurrence: AU)
  Receive Date: 20180514
  Receipt Date: 20180615
  Transmission Date: 20180711
  Serious: Yes (Death, Hospitalization)
  Sender: FDA-Public Use
  Company Number: AU-ACTELION-A-CH2018-172038

PATIENT
  Age: 89 Year
  Sex: Female
  Weight: 44 kg

DRUGS (11)
  1. MEGAFOL [Concomitant]
     Active Substance: FOLIC ACID
     Dosage: 1 TBS, UNK
  2. PANTOPRAZOLE [Concomitant]
     Active Substance: PANTOPRAZOLE
     Dosage: 40 MG, QD
  3. CALCITRIOL. [Concomitant]
     Active Substance: CALCITRIOL
     Dosage: 1 TBS, UNK
  4. SIMVASTATIN. [Concomitant]
     Active Substance: SIMVASTATIN
     Dosage: 40 MG, QD
  5. FRUSEMIDE [Concomitant]
     Active Substance: FUROSEMIDE
     Dosage: 100 MG, QD
  6. SPIRONOLACTONE. [Concomitant]
     Active Substance: SPIRONOLACTONE
     Dosage: 50 MG, UNK
  7. OPSUMIT [Suspect]
     Active Substance: MACITENTAN
     Indication: PULMONARY ARTERIAL HYPERTENSION
     Dosage: 10 MG, QD
     Route: 048
     Dates: end: 20180503
  8. FERROGRAD [Concomitant]
     Active Substance: FERROUS SULFATE
     Dosage: 1 TBS, UNK
  9. HIPREX [Concomitant]
     Active Substance: METHENAMINE HIPPURATE
     Dosage: 1 G, BID
  10. DIGOXIN. [Concomitant]
     Active Substance: DIGOXIN
     Dosage: 125 MCG, UNK
  11. VITAMIN B [Concomitant]
     Active Substance: VITAMIN B

REACTIONS (20)
  - General physical health deterioration [Unknown]
  - Fall [Unknown]
  - Blood bilirubin increased [Unknown]
  - Decubitus ulcer [Unknown]
  - Acute kidney injury [Unknown]
  - Plastic surgery [Unknown]
  - Laceration [Unknown]
  - Pulmonary arterial hypertension [Fatal]
  - Skin infection [Unknown]
  - Peripheral swelling [Unknown]
  - Hypophagia [Unknown]
  - Oedema peripheral [Unknown]
  - Wound [Unknown]
  - Blood alkaline phosphatase increased [Unknown]
  - Multiple organ dysfunction syndrome [Fatal]
  - Alanine aminotransferase increased [Unknown]
  - Gamma-glutamyltransferase increased [Unknown]
  - Disease progression [Fatal]
  - Aspartate aminotransferase increased [Unknown]
  - Cellulitis [Unknown]

NARRATIVE: CASE EVENT DATE: 20180128
